FAERS Safety Report 6593751-4 (Version None)
Quarter: 2010Q1

REPORT INFORMATION
  Report Type: 
  Country: None (occurrence: None)
  Receive Date: 20100212
  Receipt Date: 20100203
  Transmission Date: 20100710
  Serious: Yes (Other)
  Sender: FDA-Public Use
  Company Number: 2010SP007030

PATIENT
  Age: 59 Year
  Sex: Female

DRUGS (4)
  1. NOXAFIL [Suspect]
     Indication: ASPERGILLOSIS
     Dosage: PO
     Route: 048
     Dates: start: 20090911, end: 20091223
  2. VFEND [Suspect]
     Indication: ASPERGILLOSIS
     Dosage: PO
     Route: 048
     Dates: start: 20080101, end: 20080601
  3. CANCIDAS [Concomitant]
  4. SPORANOX [Concomitant]

REACTIONS (2)
  - DISEASE RECURRENCE [None]
  - SQUAMOUS CELL CARCINOMA [None]
